FAERS Safety Report 4299718-3 (Version None)
Quarter: 2004Q1

REPORT INFORMATION
  Report Type: 
  Country: None (occurrence: None)
  Receive Date: 20040219
  Receipt Date: 20040210
  Transmission Date: 20041129
  Serious: Yes (Other)
  Sender: FDA-Public Use
  Company Number: ZA-BRISTOL-MYERS SQUIBB COMPANY-12500781

PATIENT
  Age: 20 Year
  Sex: Male

DRUGS (5)
  1. CARBOPLATIN [Suspect]
     Indication: NEOPLASM
     Route: 042
     Dates: start: 20031208, end: 20031208
  2. IRINOTECAN [Suspect]
     Indication: NEOPLASM
     Route: 042
     Dates: start: 20031208, end: 20031219
  3. ATARAX [Concomitant]
     Dates: start: 20031216, end: 20031226
  4. MYCOSTATIN [Concomitant]
     Dates: start: 20031216, end: 20031226
  5. GLYCO-THYMOLINE [Concomitant]
     Dates: start: 20031216, end: 20031226

REACTIONS (1)
  - MYALGIA [None]
